FAERS Safety Report 9022643 (Version 1)
Quarter: 2013Q1

REPORT INFORMATION
  Report Type: Spontaneous
  Country: US (occurrence: US)
  Receive Date: 20130120
  Receipt Date: 20130120
  Transmission Date: 20140127
  Serious: No
  Sender: FDA-Public Use
  Company Number: US-ASTRAZENECA-2013SE03440

PATIENT
  Age: 38 Year
  Sex: Male
  Weight: 115.6 kg

DRUGS (5)
  1. PRILOSEC [Suspect]
     Indication: DYSPEPSIA
     Route: 048
     Dates: start: 1993
  2. PRILOSEC [Suspect]
     Indication: GASTROOESOPHAGEAL REFLUX DISEASE
     Route: 048
     Dates: start: 1993
  3. PRILOSEC OTC [Suspect]
     Indication: DYSPEPSIA
     Route: 048
  4. PRILOSEC OTC [Suspect]
     Indication: GASTROOESOPHAGEAL REFLUX DISEASE
     Route: 048
  5. MELOXICAM [Concomitant]
     Dosage: UNKNOWN

REACTIONS (1)
  - Hypertension [Not Recovered/Not Resolved]
